FAERS Safety Report 8228159-9 (Version None)
Quarter: 2012Q1

REPORT INFORMATION
  Report Type: 
  Country: None (occurrence: None)
  Receive Date: 20120322
  Receipt Date: 20120104
  Transmission Date: 20120608
  Serious: No
  Sender: FDA-Public Use
  Company Number: US-BRISTOL-MYERS SQUIBB COMPANY-16289357

PATIENT
  Age: 64 Year
  Sex: Female

DRUGS (1)
  1. ERBITUX [Suspect]
     Indication: HEAD AND NECK CANCER
     Dosage: LAST TRT:13DEC2011
     Route: 042
     Dates: start: 20111021, end: 20111212

REACTIONS (6)
  - OESOPHAGEAL PAIN [None]
  - WEIGHT DECREASED [None]
  - MOUTH ULCERATION [None]
  - RASH [None]
  - HAIR TEXTURE ABNORMAL [None]
  - DYSPHAGIA [None]
